FAERS Safety Report 15138290 (Version 1)
Quarter: 2018Q3

REPORT INFORMATION
  Report Type: Spontaneous
  Country: DK (occurrence: DK)
  Receive Date: 20180713
  Receipt Date: 20180713
  Transmission Date: 20181010
  Serious: Yes (Death, Other)
  Sender: FDA-Public Use
  Company Number: DK-SUN PHARMACEUTICAL INDUSTRIES LTD-2018RR-178122

PATIENT
  Age: 62 Year
  Sex: Male

DRUGS (4)
  1. GEMCITABINE [Suspect]
     Active Substance: GEMCITABINE\GEMCITABINE HYDROCHLORIDE
     Indication: SIGNET-RING CELL CARCINOMA
     Dosage: 1000 MG/M2, DAYS 1, 8 AND 15, EVERY 28 DAYS; CANCELED ON DAY 8
     Route: 065
  2. GEMCITABINE [Suspect]
     Active Substance: GEMCITABINE\GEMCITABINE HYDROCHLORIDE
     Dosage: 1000MG/M2, DAYS 1, 8 AND 15 EVERY 28 DAYS; TWO CYCLES
     Route: 065
  3. CISPLATIN. [Suspect]
     Active Substance: CISPLATIN
     Indication: SIGNET-RING CELL CARCINOMA
     Dosage: 70 MG/M2, DAY 1; WITHDRAWN ON DAY 8
     Route: 065
  4. CISPLATIN. [Suspect]
     Active Substance: CISPLATIN
     Dosage: 70 MG/M2, DAY 1; SECOND CYCLE WAS ADMINISTERED AS A SPLIT?COURSE TREATMENT
     Route: 065

REACTIONS (6)
  - Cytopenia [Unknown]
  - Disease progression [Fatal]
  - Anaemia [Unknown]
  - Fatigue [Unknown]
  - Nausea [Unknown]
  - Thrombocytopenia [Unknown]
